FAERS Safety Report 14778484 (Version 4)
Quarter: 2018Q3

REPORT INFORMATION
  Report Type: Spontaneous
  Country: US (occurrence: US)
  Receive Date: 20180419
  Receipt Date: 20180927
  Transmission Date: 20181010
  Serious: Yes (Other)
  Sender: FDA-Public Use
  Company Number: US-AMGEN-USASP2017166435

PATIENT
  Age: 79 Year
  Sex: Female

DRUGS (1)
  1. XGEVA [Suspect]
     Active Substance: DENOSUMAB
     Indication: BREAST CANCER METASTATIC
     Dosage: UNK, Q4WK
     Route: 065
     Dates: start: 2015

REACTIONS (4)
  - Osteonecrosis of jaw [Not Recovered/Not Resolved]
  - Malaise [Unknown]
  - Tooth disorder [Recovering/Resolving]
  - Toothache [Not Recovered/Not Resolved]

NARRATIVE: CASE EVENT DATE: 2018
